FAERS Safety Report 10416899 (Version 1)
Quarter: 2014Q3

REPORT INFORMATION
  Report Type: Spontaneous
  Country: US (occurrence: None)
  Receive Date: 20140826
  Receipt Date: 20140826
  Transmission Date: 20150326
  Serious: No
  Sender: FDA-Public Use
  Company Number: DQ-50-1204

PATIENT
  Age: 84 Year
  Sex: Female
  Weight: 58.97 kg

DRUGS (2)
  1. 0.02% INPRATOPIUM BROMIDE INHALATION SOULTION [Concomitant]
  2. ALBUTEROL SULFATE INHALATION SOLUTION, 0.083% [Suspect]
     Active Substance: ALBUTEROL SULFATE
     Dosage: 1 VIAL
     Dates: start: 20140801

REACTIONS (3)
  - Dyspnoea [None]
  - Product physical issue [None]
  - Lung disorder [None]

NARRATIVE: CASE EVENT DATE: 201408
